FAERS Safety Report 9532540 (Version 1)
Quarter: 2013Q1

REPORT INFORMATION
  Report Type: Spontaneous
  Country: US (occurrence: None)
  Receive Date: 20130329
  Receipt Date: 20130329
  Transmission Date: 20140127
  Serious: No
  Sender: FDA-Public Use
  Company Number: 1000041898

PATIENT
  Age: 53 Year
  Sex: Male

DRUGS (10)
  1. LINZESS ( LINACLOTIDE) [Suspect]
     Indication: CONSTIPATION
     Route: 048
     Dates: start: 20130114
  2. OXYCODONE [Concomitant]
  3. LUNESTA (ESZOPICLONE) [Concomitant]
  4. DIAZEPAM [Concomitant]
  5. TIZANIDINE [Concomitant]
  6. HYDROCODONE [Concomitant]
  7. SENNA PLUS [Concomitant]
  8. DULCOLAX [Concomitant]
  9. PROBIOTIC [Concomitant]
  10. STOOL SOFTENER (NOS) [Concomitant]

REACTIONS (1)
  - Diarrhoea [None]
